FAERS Safety Report 6478812-2 (Version None)
Quarter: 2009Q4

REPORT INFORMATION
  Report Type: 
  Country: None (occurrence: None)
  Receive Date: 20091207
  Receipt Date: 20091125
  Transmission Date: 20100525
  Serious: Yes (Other)
  Sender: FDA-Public Use
  Company Number: US-SANOFI-AVENTIS-2009SA004510

PATIENT
  Age: 72 Year
  Sex: Male

DRUGS (11)
  1. PLAVIX [Suspect]
     Route: 048
     Dates: start: 20060523, end: 20091115
  2. PLAVIX [Suspect]
     Route: 048
     Dates: start: 20091120
  3. ASCORBIC ACID [Concomitant]
  4. VITAMIN D [Concomitant]
  5. FISH OIL [Concomitant]
  6. HUMALOG [Concomitant]
     Dosage: 75/25 MIX; 16 UNITS IN AM AND 24 UNITS IN PM
  7. ADVAIR DISKUS 100/50 [Concomitant]
  8. COMBIVENT /JOR/ [Concomitant]
  9. CLONIDINE [Concomitant]
  10. ATENOLOL [Concomitant]
  11. NEXIUM /UNK/ [Concomitant]

REACTIONS (9)
  - CAROTID ARTERY STENOSIS [None]
  - CEREBROVASCULAR ACCIDENT [None]
  - HEMIPARESIS [None]
  - HYPOAESTHESIA ORAL [None]
  - NEUROPATHY PERIPHERAL [None]
  - PARALYSIS [None]
  - TIC [None]
  - TRANSIENT ISCHAEMIC ATTACK [None]
  - TREMOR [None]
